FAERS Safety Report 25164482 (Version 1)
Quarter: 2025Q2

REPORT INFORMATION
  Report Type: Spontaneous
  Country: US (occurrence: US)
  Receive Date: 20250406
  Receipt Date: 20250406
  Transmission Date: 20250717
  Serious: Yes (Other)
  Sender: IPSEN
  Company Number: US-IPSEN Group, Research and Development-2025-07583

PATIENT
  Age: 74 Year
  Sex: Male

DRUGS (2)
  1. LANREOTIDE [Suspect]
     Active Substance: LANREOTIDE
     Indication: Carcinoid syndrome
     Route: 065
  2. OCTREOTIDE [Suspect]
     Active Substance: OCTREOTIDE
     Indication: Carcinoid syndrome
     Route: 065

REACTIONS (6)
  - Intestinal obstruction [Unknown]
  - Large intestinal stenosis [Unknown]
  - Malignant neoplasm progression [Unknown]
  - Abdominal pain [Unknown]
  - Constipation [Unknown]
  - Vomiting [Unknown]
